FAERS Safety Report 4946307-0 (Version None)
Quarter: 2006Q1

REPORT INFORMATION
  Report Type: 
  Country: None (occurrence: None)
  Receive Date: 20060316
  Receipt Date: 20060316
  Transmission Date: 20060701
  Serious: Yes (Hospitalization, Other)
  Sender: FDA-Public Use
  Company Number: None

PATIENT
  Age: 61 Year
  Sex: Male
  Weight: 30.2 kg

DRUGS (7)
  1. LEVALBUTEROL HCL [Suspect]
     Indication: BRONCHIAL DISORDER
     Dosage: 0.63 MG Q4 HOUR INHAL
     Route: 055
     Dates: start: 20060308, end: 20060310
  2. MORPHINE [Concomitant]
  3. ESOMEPRAZOLE [Concomitant]
  4. CEFEPIME [Concomitant]
  5. LEVOFLOXACIN [Concomitant]
  6. CLINDAMYCIN [Concomitant]
  7. MAGNESIUM [Concomitant]

REACTIONS (1)
  - TACHYCARDIA [None]
